FAERS Safety Report 10110867 (Version 2)
Quarter: 2014Q3

REPORT INFORMATION
  Report Type: Spontaneous
  Country: US (occurrence: None)
  Receive Date: 20140421
  Receipt Date: 20140722
  Transmission Date: 20150326
  Serious: No
  Sender: FDA-Public Use
  Company Number: AEGR000319

PATIENT
  Age: 58 Year
  Sex: Male
  Weight: 91.2 kg

DRUGS (29)
  1. OMEGA 3 (FISH OIL) [Concomitant]
     Active Substance: OMEGA-3 FATTY ACIDS
  2. ALBUTEROL (SALBUTAMOL) [Concomitant]
     Active Substance: ALBUTEROL
  3. BUSPIRONE [Concomitant]
     Active Substance: BUSPIRONE HYDROCHLORIDE
  4. TOPROL (METOPROLOL SUCCINATE) [Concomitant]
  5. VITAMIN C [Concomitant]
     Active Substance: ASCORBIC ACID
  6. METFORMIN [Concomitant]
     Active Substance: METFORMIN HYDROCHLORIDE
  7. ZETIA [Concomitant]
     Active Substance: EZETIMIBE
  8. FOLIC ACID. [Concomitant]
     Active Substance: FOLIC ACID
  9. PRAVASTATIN (PRAVASTATIN SODIUM) [Concomitant]
  10. VITAMIN D3 [Concomitant]
     Active Substance: CHOLECALCIFEROL
  11. EPIPEN [Concomitant]
     Active Substance: EPINEPHRINE
  12. TRICOR [Concomitant]
     Active Substance: FENOFIBRATE
  13. ADVAIR HFA (FLUTICASONE PROPIONATE, SALMETROL XINAFOATE) [Concomitant]
  14. LISINOPRIL. [Concomitant]
     Active Substance: LISINOPRIL
  15. MULTIVITAMIN (VITAMIN NOS) [Concomitant]
  16. ASPIRIN (ACETYLSALICYLIC ACID) [Concomitant]
     Active Substance: ASPIRIN
  17. CLOPIDOGREL BISULFATE. [Concomitant]
     Active Substance: CLOPIDOGREL BISULFATE
  18. LORAZEPAM. [Concomitant]
     Active Substance: LORAZEPAM
  19. THIAMINE HYDROCHLORIDE. [Concomitant]
     Active Substance: THIAMINE HYDROCHLORIDE
  20. TYLENOL ARTHRITIS (PARACETAMOL) [Concomitant]
  21. LANTUS [Concomitant]
     Active Substance: INSULIN GLARGINE
  22. AMBIEN [Concomitant]
     Active Substance: ZOLPIDEM TARTRATE
  23. JUXTAPID [Suspect]
     Active Substance: LOMITAPIDE MESYLATE
     Indication: TYPE IIA HYPERLIPIDAEMIA
     Dates: start: 20130924
  24. CYCLOBENZAPRINE [Concomitant]
     Active Substance: CYCLOBENZAPRINE
  25. MUCINEX (GUAIFENESIN) [Concomitant]
  26. SINGULAIR (MONTELUKAST SODIUM) [Concomitant]
  27. NITROGLYCERIN (GLYCERYL TRINITRATE) [Concomitant]
  28. ACIPHEX (RABEPRAZOLE SODIUUM) [Concomitant]
  29. SPIRIVA [Concomitant]
     Active Substance: TIOTROPIUM BROMIDE MONOHYDRATE

REACTIONS (4)
  - Weight decreased [None]
  - Blood triglycerides increased [None]
  - Sinusitis [None]
  - High density lipoprotein decreased [None]

NARRATIVE: CASE EVENT DATE: 201309
